FAERS Safety Report 14143921 (Version 3)
Quarter: 2017Q4

REPORT INFORMATION
  Report Type: Spontaneous
  Country: JP (occurrence: JP)
  Receive Date: 20171031
  Receipt Date: 20171228
  Transmission Date: 20180321
  Serious: Yes (Other)
  Sender: FDA-Public Use
  Company Number: JP-AMGEN-JPNSP2017162828

PATIENT
  Age: 62 Year
  Sex: Male

DRUGS (4)
  1. PRALIA [Suspect]
     Active Substance: DENOSUMAB
     Indication: OSTEOPOROSIS PROPHYLAXIS
     Dosage: UNK (THREE TIMES)
     Route: 065
     Dates: start: 201402
  2. PRALIA [Suspect]
     Active Substance: DENOSUMAB
     Dosage: UNK (THREE TIMES)
     Route: 065
     Dates: start: 201508, end: 201508
  3. PRALIA [Suspect]
     Active Substance: DENOSUMAB
     Dosage: UNK (THREE TIMES)
     Route: 065
     Dates: start: 201502
  4. METHOTREXATE. [Suspect]
     Active Substance: METHOTREXATE
     Indication: RHEUMATOID ARTHRITIS
     Dosage: 2 MG CAPSULE, SUNDAY 4 C/BID, MONDAY 2 C /QD (WEEK 12 MG)
     Route: 048
     Dates: start: 2011, end: 201703

REACTIONS (3)
  - Lymphoproliferative disorder [Not Recovered/Not Resolved]
  - Osteonecrosis of jaw [Recovered/Resolved]
  - Off label use [Unknown]

NARRATIVE: CASE EVENT DATE: 2015
